FAERS Safety Report 8832775 (Version 1)
Quarter: 2012Q4

REPORT INFORMATION
  Report Type: 
  Country: US (occurrence: US)
  Receive Date: 20121010
  Receipt Date: 20121010
  Transmission Date: 20130627
  Serious: No
  Sender: FDA-Public Use
  Company Number: US-PFIZER INC-2012246572

PATIENT
  Age: 62 Year
  Sex: Male
  Weight: 86 kg

DRUGS (3)
  1. TIKOSYN [Suspect]
     Indication: ARRHYTHMIA
     Dosage: 250 ug, 2x/day
     Route: 048
     Dates: start: 201208, end: 2012
  2. TIKOSYN [Suspect]
     Dosage: 500 ug, 2x/day
     Route: 048
     Dates: start: 2012
  3. METOPROLOL [Concomitant]
     Indication: HYPERTENSION
     Dosage: UNK, 2x/day

REACTIONS (1)
  - Drug ineffective [Unknown]
